FAERS Safety Report 6300418-6 (Version None)
Quarter: 2009Q3

REPORT INFORMATION
  Report Type: 
  Country: None (occurrence: None)
  Receive Date: 20090806
  Receipt Date: 20080830
  Transmission Date: 20100115
  Serious: No
  Sender: FDA-Public Use
  Company Number: US-ABBOTT-08P-163-0473347-00

PATIENT
  Sex: Female

DRUGS (2)
  1. DEPAKOTE ER [Suspect]
     Indication: MAJOR DEPRESSION
     Dosage: ONLY TOOK 2 TABLETS
  2. DEPAKOTE ER [Suspect]
     Indication: BIPOLAR DISORDER

REACTIONS (3)
  - FIBROMYALGIA [None]
  - INTERVERTEBRAL DISC PROTRUSION [None]
  - PAIN [None]
